FAERS Safety Report 5039371-4 (Version None)
Quarter: 2006Q2

REPORT INFORMATION
  Report Type: 
  Country: None (occurrence: None)
  Receive Date: 20060629
  Receipt Date: 20050517
  Transmission Date: 20061013
  Serious: Yes (Hospitalization)
  Sender: FDA-Public Use
  Company Number: CA-BRISTOL-MYERS SQUIBB COMPANY-12971677

PATIENT
  Age: 63 Year
  Sex: Male
  Weight: 72 kg

DRUGS (5)
  1. ERBITUX [Suspect]
     Indication: COLON CANCER
     Dosage: INITIAL TX DATE: 14-APR-05, 760 MG.  REDUCED TO 380 MG WKLY ADM ON 12-MAY-05.
     Route: 042
     Dates: start: 20050428, end: 20050428
  2. DOCUSATE SODIUM [Concomitant]
     Indication: FAECES HARD
     Dates: start: 20050323
  3. MULTI-VITAMIN [Concomitant]
     Indication: MEDICAL DIET
     Dates: start: 19750101
  4. IRON [Concomitant]
     Indication: MEDICAL DIET
     Dates: start: 20040201
  5. ASCORBIC ACID [Concomitant]
     Indication: VITAMIN SUPPLEMENTATION

REACTIONS (3)
  - ABDOMINAL PAIN UPPER [None]
  - CONFUSIONAL STATE [None]
  - HYPERHIDROSIS [None]
